FAERS Safety Report 25483888 (Version 1)
Quarter: 2025Q2

REPORT INFORMATION
  Report Type: Spontaneous
  Country: FR (occurrence: FR)
  Receive Date: 20250626
  Receipt Date: 20250626
  Transmission Date: 20250717
  Serious: Yes (Other)
  Sender: PFIZER
  Company Number: None

PATIENT
  Age: 57 Year
  Sex: Female

DRUGS (1)
  1. METHOTREXATE SODIUM [Suspect]
     Active Substance: METHOTREXATE SODIUM
     Indication: Cutaneous T-cell lymphoma
     Dosage: 15 MG, WEEKLY
     Route: 048
     Dates: start: 202408, end: 202412

REACTIONS (7)
  - Brain fog [Recovering/Resolving]
  - Depression [Recovered/Resolved]
  - Abdominal pain [Recovered/Resolved]
  - Dyspnoea [Recovered/Resolved]
  - Dizziness [Recovered/Resolved]
  - Visual impairment [Recovering/Resolving]
  - Off label use [Unknown]

NARRATIVE: CASE EVENT DATE: 20240801
